FAERS Safety Report 12211676 (Version 1)
Quarter: 2016Q1

REPORT INFORMATION
  Report Type: Spontaneous
  Country: US (occurrence: US)
  Receive Date: 20160325
  Receipt Date: 20160325
  Transmission Date: 20160526
  Serious: Yes (Hospitalization, Other)
  Sender: FDA-Public Use
  Company Number: US-AMGEN-USASP2016034849

PATIENT
  Age: 47 Year
  Sex: Female

DRUGS (1)
  1. NPLATE [Suspect]
     Active Substance: ROMIPLOSTIM
     Indication: IMMUNE THROMBOCYTOPENIC PURPURA
     Dosage: 5 MUG/KG, QWK
     Route: 065
     Dates: start: 2011

REACTIONS (25)
  - Stress [Unknown]
  - Tinnitus [Unknown]
  - Platelet count abnormal [Unknown]
  - Chills [Recovered/Resolved]
  - Nausea [Recovered/Resolved]
  - Nasopharyngitis [Recovered/Resolved]
  - Hospitalisation [Unknown]
  - Frustration tolerance decreased [Unknown]
  - Injection site hypoaesthesia [Recovered/Resolved]
  - Balance disorder [Recovered/Resolved]
  - Pain in extremity [Recovered/Resolved]
  - Disturbance in attention [Unknown]
  - Hallucination [Unknown]
  - Arrhythmia [Recovered/Resolved]
  - Ovarian mass [Recovered/Resolved]
  - Lower respiratory tract infection [Recovered/Resolved]
  - Loss of consciousness [Unknown]
  - Inappropriate schedule of drug administration [Unknown]
  - Emotional disorder [Unknown]
  - Alopecia [Unknown]
  - Pain [Unknown]
  - Menorrhagia [Unknown]
  - Cough [Unknown]
  - Epistaxis [Unknown]
  - Depression [Unknown]

NARRATIVE: CASE EVENT DATE: 2011
